FAERS Safety Report 16871622 (Version 1)
Quarter: 2019Q4

REPORT INFORMATION
  Report Type: Spontaneous
  Country: GB (occurrence: GB)
  Receive Date: 20191001
  Receipt Date: 20191001
  Transmission Date: 20200122
  Serious: Yes (Life-Threatening, Disabling, Other)
  Sender: FDA-Public Use
  Company Number: GB-TEVA-2019-GB-1114761

PATIENT
  Age: 68 Year
  Sex: Female
  Weight: 85.09 kg

DRUGS (7)
  1. BISOPROLOL [Suspect]
     Active Substance: BISOPROLOL
     Dosage: 1.25MG AND 5MG TABLETS
     Route: 048
     Dates: start: 20190530
  2. FLECAINIDE [Concomitant]
     Active Substance: FLECAINIDE
     Dosage: 100 MG, 1 DAY
     Dates: start: 20190820
  3. APIXABAN [Concomitant]
     Active Substance: APIXABAN
     Dosage: 12 HOURS APART; 10 MG, 1 DAY
     Dates: start: 20190820
  4. LEVOTHYROXINE. [Concomitant]
     Active Substance: LEVOTHYROXINE
     Dosage: 50 MCG, 1 DAY
     Dates: start: 20190723
  5. METHOTREXATE. [Concomitant]
     Active Substance: METHOTREXATE
     Dosage: 10 MG PER 1 WEEK
     Dates: start: 20190808, end: 20190902
  6. METHOTREXATE. [Concomitant]
     Active Substance: METHOTREXATE
     Dosage: 15 MG PER 1 WEEK
     Dates: end: 20190723
  7. ZOPICLONE [Concomitant]
     Active Substance: ZOPICLONE
     Dosage: AT NIGHT. FOR SHORT TERM USE OCCASIONAL ONLY; 3.75 MG PER 1DAY
     Dates: start: 20190612

REACTIONS (3)
  - Wheezing [Unknown]
  - Bradycardia [Recovering/Resolving]
  - Hypotension [Unknown]

NARRATIVE: CASE EVENT DATE: 20190530
